FAERS Safety Report 16426225 (Version 2)
Quarter: 2021Q4

REPORT INFORMATION
  Report Type: Report from Study
  Country: CN (occurrence: CN)
  Receive Date: 20190613
  Receipt Date: 20211102
  Transmission Date: 20220303
  Serious: Yes (Hospitalization, Other)
  Sender: FDA-Public Use
  Company Number: CN-BAYER-2019-111471

PATIENT
  Age: 33 Year
  Sex: Female
  Weight: 55 kg

DRUGS (6)
  1. RIVAROXABAN [Suspect]
     Active Substance: RIVAROXABAN
     Indication: Pulmonary embolism
     Dosage: 15 MG, BID
     Route: 048
     Dates: start: 20190211, end: 20190224
  2. RIVAROXABAN [Suspect]
     Active Substance: RIVAROXABAN
     Dosage: 20 MG, QD
     Route: 048
     Dates: start: 20190225, end: 201904
  3. LORATADINE [Concomitant]
     Active Substance: LORATADINE
     Indication: Eczema
     Dosage: 10 MG, QD
     Route: 048
     Dates: start: 20190212
  4. FERROUS SUCCINATE [Concomitant]
     Active Substance: FERROUS SUCCINATE
     Indication: Anaemia
     Dosage: 0.3 G, TID
     Route: 048
     Dates: start: 20190213
  5. FOLIC ACID [Concomitant]
     Active Substance: FOLIC ACID
     Indication: Anaemia
     Dosage: 15 MG, TID
     Route: 048
     Dates: start: 20190213
  6. METHYLCOBALAMIN [Concomitant]
     Active Substance: METHYLCOBALAMIN
     Indication: Anaemia
     Dosage: 1500 MG, TID
     Route: 048
     Dates: start: 20190214

REACTIONS (2)
  - Takayasu^s arteritis [Recovered/Resolved]
  - Anaemia [Recovered/Resolved]

NARRATIVE: CASE EVENT DATE: 20190401
